FAERS Safety Report 6736705-7 (Version None)
Quarter: 2010Q2

REPORT INFORMATION
  Report Type: 
  Country: None (occurrence: None)
  Receive Date: 20100521
  Receipt Date: 20100512
  Transmission Date: 20101027
  Serious: Yes (Hospitalization)
  Sender: FDA-Public Use
  Company Number: PHHO2010KR07275

PATIENT
  Weight: 63 kg

DRUGS (1)
  1. TASIGNA [Suspect]
     Indication: CHRONIC MYELOID LEUKAEMIA
     Dosage: 600MG
     Route: 048
     Dates: start: 20080811, end: 20100511

REACTIONS (4)
  - ASTHENIA [None]
  - DECREASED APPETITE [None]
  - PALPITATIONS [None]
  - PARAESTHESIA [None]
